FAERS Safety Report 7202108-4 (Version None)
Quarter: 2010Q4

REPORT INFORMATION
  Report Type: 
  Country: None (occurrence: None)
  Receive Date: 20101229
  Receipt Date: 20101215
  Transmission Date: 20110411
  Serious: Yes (Death)
  Sender: FDA-Public Use
  Company Number: PHHY2010US84133

PATIENT
  Sex: Male

DRUGS (1)
  1. TYZEKA [Suspect]
     Indication: HYPOTHALAMO-PITUITARY DISORDER
     Dosage: 600 MG, QD
     Route: 048
     Dates: start: 20100720

REACTIONS (1)
  - HEPATIC NEOPLASM MALIGNANT [None]
